FAERS Safety Report 19854449 (Version 1)
Quarter: 2021Q3

REPORT INFORMATION
  Report Type: Spontaneous
  Country: US (occurrence: US)
  Receive Date: 20210920
  Receipt Date: 20210920
  Transmission Date: 20211014
  Serious: No
  Sender: FDA-Public Use
  Company Number: US-ALVOGEN-2021-ALVOGEN-117520

PATIENT

DRUGS (1)
  1. AMPHETAMINE/DEXTROAMPHETAMINE [Suspect]
     Active Substance: AMPHETAMINE\DEXTROAMPHETAMINE
     Indication: ATTENTION DEFICIT HYPERACTIVITY DISORDER
     Dosage: 7.5 MG, 7.5 MG, 7.5 MG, 7.5 MG

REACTIONS (5)
  - Condition aggravated [Unknown]
  - Product substitution issue [Unknown]
  - Illness [Unknown]
  - Therapeutic product ineffective [Unknown]
  - Attention deficit hyperactivity disorder [Unknown]
